FAERS Safety Report 16717714 (Version 5)
Quarter: 2020Q1

REPORT INFORMATION
  Report Type: Spontaneous
  Country: JP (occurrence: JP)
  Receive Date: 20190819
  Receipt Date: 20200131
  Transmission Date: 20200409
  Serious: Yes (Hospitalization)
  Sender: FDA-Public Use
  Company Number: JP-PFIZER INC-2019351982

PATIENT
  Sex: Male
  Weight: 2.74 kg

DRUGS (8)
  1. UTERON [Concomitant]
     Active Substance: RITODRINE HYDROCHLORIDE
     Indication: ABDOMINAL PAIN
     Dosage: 5 MG, AS NEEDED
     Route: 064
  2. IDARUBICIN [Concomitant]
     Active Substance: IDARUBICIN
     Indication: ACUTE PROMYELOCYTIC LEUKAEMIA
     Dosage: UNK, (INDUCTION THERAPY, WAS ADMINISTERED THRICE 18 MG/DAY 28W2D, 28W4D, 28W6D)
     Route: 064
  3. MAGNESIUM SULFATE. [Concomitant]
     Active Substance: MAGNESIUM SULFATE
     Indication: UTERINE CONTRACTIONS DURING PREGNANCY
     Dosage: UNK
     Route: 064
  4. MEROPEN [Suspect]
     Active Substance: MEROPENEM
     Dosage: 1 G, 2X/DAY
  5. IDARUBICIN [Concomitant]
     Active Substance: IDARUBICIN
     Indication: PROPHYLAXIS
     Dosage: 12 MG/M2, UNK
  6. MEROPEN [Suspect]
     Active Substance: MEROPENEM
     Indication: FEBRILE NEUTROPENIA
     Dosage: 2 G, 2X/DAY
     Route: 064
  7. MAGNESIUM SULFATE. [Concomitant]
     Active Substance: MAGNESIUM SULFATE
     Indication: BLOOD COUNT ABNORMAL
  8. ALL-TRANS RETINOIC ACID [Concomitant]
     Active Substance: TRETINOIN
     Indication: ACUTE PROMYELOCYTIC LEUKAEMIA
     Dosage: UNK
     Route: 064

REACTIONS (2)
  - Neonatal respiratory distress syndrome [Recovered/Resolved]
  - Foetal exposure during pregnancy [Unknown]
